FAERS Safety Report 8166057-X (Version None)
Quarter: 2012Q1

REPORT INFORMATION
  Report Type: 
  Country: None (occurrence: None)
  Receive Date: 20120227
  Receipt Date: 20110706
  Transmission Date: 20120608
  Serious: No
  Sender: FDA-Public Use
  Company Number: US-MYLANLABS-2011S1004222

PATIENT
  Age: 27 Year
  Sex: Male
  Weight: 74.84 kg

DRUGS (3)
  1. AMNESTEEM [Suspect]
     Indication: ACNE
     Route: 048
     Dates: start: 20101004, end: 20110212
  2. LAMICTAL [Concomitant]
  3. ZANTAC [Concomitant]

REACTIONS (2)
  - TINNITUS [None]
  - HYPOACUSIS [None]
